FAERS Safety Report 10464124 (Version 2)
Quarter: 2014Q4

REPORT INFORMATION
  Report Type: Report from Study
  Country: JP (occurrence: JP)
  Receive Date: 20140919
  Receipt Date: 20141010
  Transmission Date: 20150528
  Serious: Yes (Death)
  Sender: FDA-Public Use
  Company Number: JP-SA-2014SA125652

PATIENT
  Age: 81 Year
  Sex: Female
  Weight: 52.1 kg

DRUGS (11)
  1. REGPARA [Concomitant]
     Active Substance: CINACALCET HYDROCHLORIDE
     Route: 048
  2. PANTOSIN [Concomitant]
     Active Substance: PANTETHINE
     Dosage: 3 TAB/DAY
     Route: 048
  3. PLAVIX [Suspect]
     Active Substance: CLOPIDOGREL BISULFATE
     Indication: PERIPHERAL ARTERIAL OCCLUSIVE DISEASE
     Route: 048
     Dates: start: 20130912, end: 20131213
  4. BAYASPIRIN [Concomitant]
     Active Substance: ASPIRIN
     Indication: ARTERIOSCLEROSIS
     Route: 048
     Dates: start: 20130912, end: 20131213
  5. KIKLIN [Concomitant]
     Active Substance: BIXALOMER
     Dosage: 9 CAP/DAY
     Route: 048
  6. SENNA [Concomitant]
     Active Substance: SENNA LEAF\SENNOSIDES\SENNOSIDES A AND B
     Dosage: 1 PACKAGE
     Route: 048
  7. SODIUM PICOSULFATE [Concomitant]
     Active Substance: SODIUM PICOSULFATE
     Dosage: DOSE: 1 CONTAINER
     Route: 048
  8. EPADEL [Concomitant]
     Active Substance: ICOSAPENT
     Route: 048
     Dates: start: 20130912, end: 20131209
  9. LIVALO [Concomitant]
     Active Substance: PITAVASTATIN CALCIUM
     Route: 048
     Dates: start: 20130912, end: 20131209
  10. TAKEPRON [Concomitant]
     Active Substance: LANSOPRAZOLE
     Route: 048
     Dates: start: 20130912, end: 20131209
  11. SORBITOL. [Concomitant]
     Active Substance: SORBITOL
     Dosage: 45ML/DAY TID

REACTIONS (2)
  - Peripheral ischaemia [Fatal]
  - Haemorrhage [Fatal]

NARRATIVE: CASE EVENT DATE: 20131210
